FAERS Safety Report 8838834 (Version 1)
Quarter: 2012Q4

REPORT INFORMATION
  Report Type: Spontaneous
  Country: US (occurrence: None)
  Receive Date: 20121011
  Receipt Date: 20121011
  Transmission Date: 20130627
  Serious: Yes (Other)
  Sender: FDA-Public Use
  Company Number: None

PATIENT
  Sex: Female
  Weight: 74.84 kg

DRUGS (2)
  1. ATORVASTATIN [Suspect]
     Indication: CHOLESTEROL HIGH
     Dosage: 20 mg  1  po
     Route: 048
     Dates: start: 20110317, end: 20120922
  2. ATORVASTATIN [Suspect]
     Dosage: 40 mg 1 po
     Route: 048
     Dates: start: 20120922, end: 20121008

REACTIONS (8)
  - Headache [None]
  - Muscular weakness [None]
  - Back pain [None]
  - Neck pain [None]
  - Dizziness [None]
  - Nausea [None]
  - Vomiting [None]
  - Malaise [None]
